FAERS Safety Report 20053042 (Version 1)
Quarter: 2021Q4

REPORT INFORMATION
  Report Type: Spontaneous
  Country: US (occurrence: US)
  Receive Date: 20211110
  Receipt Date: 20211110
  Transmission Date: 20220304
  Serious: Yes (Hospitalization, Other)
  Sender: FDA-Public Use
  Company Number: US-PFIZER INC-202101504354

PATIENT
  Age: 74 Year
  Sex: Male

DRUGS (2)
  1. BRAFTOVI [Suspect]
     Active Substance: ENCORAFENIB
     Dosage: 300 MG
     Dates: end: 202111
  2. PANITUMUMAB [Concomitant]
     Active Substance: PANITUMUMAB

REACTIONS (3)
  - Urosepsis [Unknown]
  - Nephrolithiasis [Unknown]
  - Lymphadenopathy [Unknown]
